FAERS Safety Report 17209539 (Version 1)
Quarter: 2019Q4

REPORT INFORMATION
  Report Type: Spontaneous
  Country: US (occurrence: US)
  Receive Date: 20191227
  Receipt Date: 20191227
  Transmission Date: 20200122
  Serious: No
  Sender: FDA-Public Use
  Company Number: US-TORRENT-00009063

PATIENT
  Sex: Female
  Weight: 63 kg

DRUGS (1)
  1. TRAZODONE [Suspect]
     Active Substance: TRAZODONE HYDROCHLORIDE
     Indication: INSOMNIA
     Dates: start: 20190618, end: 20190619

REACTIONS (6)
  - Off label use [Unknown]
  - Gait disturbance [Recovered/Resolved]
  - Product substitution issue [Unknown]
  - Loss of personal independence in daily activities [Recovered/Resolved]
  - Dizziness [Recovered/Resolved]
  - Vision blurred [Recovered/Resolved]

NARRATIVE: CASE EVENT DATE: 20190618
